FAERS Safety Report 8444807-2 (Version None)
Quarter: 2012Q2

REPORT INFORMATION
  Report Type: 
  Country: None (occurrence: None)
  Receive Date: 20120618
  Receipt Date: 20120611
  Transmission Date: 20120825
  Serious: Yes (Other)
  Sender: FDA-Public Use
  Company Number: PHHY2012NZ049908

PATIENT
  Sex: Male

DRUGS (2)
  1. CLOZARIL [Suspect]
     Indication: SCHIZOTYPAL PERSONALITY DISORDER
     Dosage: 175 MG,QD
     Route: 048
     Dates: start: 20120216
  2. CITALOPRAM [Concomitant]
     Dosage: 20 MG, QD
     Route: 048
     Dates: start: 20120426

REACTIONS (6)
  - OROPHARYNGEAL PAIN [None]
  - MALAISE [None]
  - VOMITING [None]
  - NAUSEA [None]
  - INFECTION [None]
  - HEADACHE [None]
